FAERS Safety Report 24957071 (Version 2)
Quarter: 2025Q1

REPORT INFORMATION
  Report Type: Spontaneous
  Country: US (occurrence: US)
  Receive Date: 20250211
  Receipt Date: 20250217
  Transmission Date: 20250409
  Serious: No
  Sender: MERCK SHARP & DOHME LLC
  Company Number: US-009507513-2253590

PATIENT
  Age: 23 Year
  Sex: Male

DRUGS (3)
  1. TEMOZOLOMIDE [Suspect]
     Active Substance: TEMOZOLOMIDE
     Indication: Angiosarcoma recurrent
     Dosage: 5 OF EVERY 28 DAYS
     Route: 048
  2. BINIMETINIB [Concomitant]
     Active Substance: BINIMETINIB
     Route: 065
  3. ENCORAFENIB [Concomitant]
     Active Substance: ENCORAFENIB

REACTIONS (1)
  - Product use in unapproved indication [Unknown]
